FAERS Safety Report 8461053 (Version 2)
Quarter: 2012Q4

REPORT INFORMATION
  Report Type: 
  Country: US (occurrence: US)
  Receive Date: 20120315
  Receipt Date: 20121018
  Transmission Date: 20130627
  Serious: Yes (Other)
  Sender: FDA-Public Use
  Company Number: PHEH2012US005727

PATIENT
  Sex: Female

DRUGS (9)
  1. RECLAST [Suspect]
     Indication: OSTEOPOROSIS
     Dosage: UNK UKN, yearly
     Route: 042
     Dates: start: 20120126
  2. OXYCODONE [Concomitant]
     Indication: PAIN
     Dosage: UNK UKN, UNK
  3. VITAMIN D [Concomitant]
     Dosage: UNK UKN, UNK
  4. CALCIUM [Concomitant]
     Dosage: UNK UKN, UNK
  5. CENTRUM SILVER [Concomitant]
     Dosage: UNK UKN, UNK
  6. ZOLOFT [Concomitant]
     Dosage: UNK UKN, UNK
  7. XANAX [Concomitant]
     Dosage: UNK UKN, UNK
  8. OXYCONTIN [Concomitant]
     Indication: PAIN
     Dosage: UNK UKN, UNK
  9. PROTONIX [Concomitant]
     Indication: GASTROOESOPHAGEAL REFLUX DISEASE
     Dosage: UNK UKN, UNK

REACTIONS (3)
  - Cellulitis [Unknown]
  - Arthralgia [Unknown]
  - Asthenia [Unknown]
